FAERS Safety Report 20621471 (Version 1)
Quarter: 2022Q1

REPORT INFORMATION
  Report Type: Spontaneous
  Country: US (occurrence: US)
  Receive Date: 20220322
  Receipt Date: 20220322
  Transmission Date: 20220424
  Serious: No
  Sender: FDA-Public Use
  Company Number: US-ALLERGAN-2116177US

PATIENT
  Age: 45 Year
  Sex: Female

DRUGS (1)
  1. LATISSE [Suspect]
     Active Substance: BIMATOPROST
     Indication: Growth of eyelashes
     Dosage: 2 GTT, QHS
     Route: 061
     Dates: start: 20210403, end: 20210404

REACTIONS (5)
  - Wrong technique in product usage process [Unknown]
  - Eyelid margin crusting [Recovered/Resolved]
  - Headache [Recovered/Resolved]
  - Eye discharge [Recovered/Resolved]
  - Swelling of eyelid [Recovered/Resolved]

NARRATIVE: CASE EVENT DATE: 20210403
